FAERS Safety Report 20572325 (Version 1)
Quarter: 2022Q1

REPORT INFORMATION
  Report Type: Spontaneous
  Country: JP (occurrence: JP)
  Receive Date: 20220309
  Receipt Date: 20220309
  Transmission Date: 20220424
  Serious: Yes (Other)
  Sender: FDA-Public Use
  Company Number: JP-GLENMARK PHARMACEUTICALS-2022GMK071091

PATIENT
  Age: 4 Year
  Sex: Female
  Weight: 19 kg

DRUGS (4)
  1. CLOBETASOL PROPIONATE [Suspect]
     Active Substance: CLOBETASOL PROPIONATE
     Indication: Scar
     Dosage: 275 GRAM IN FIRST TRIMESTER
     Route: 061
  2. CLOBETASOL PROPIONATE [Suspect]
     Active Substance: CLOBETASOL PROPIONATE
     Indication: Pruritus
     Dosage: 3.4 GRAM, OD
     Route: 061
  3. CLOBETASOL PROPIONATE [Suspect]
     Active Substance: CLOBETASOL PROPIONATE
     Dosage: 5.8 GRAM, OD
     Route: 061
  4. CLOBETASOL PROPIONATE [Suspect]
     Active Substance: CLOBETASOL PROPIONATE
     Dosage: 0.58 GRAM, OD
     Route: 061

REACTIONS (2)
  - Incorrect product administration duration [Unknown]
  - Cushing^s syndrome [Recovered/Resolved]
